FAERS Safety Report 15453417 (Version 1)
Quarter: 2018Q4

REPORT INFORMATION
  Report Type: Spontaneous
  Country: NG (occurrence: NG)
  Receive Date: 20181001
  Receipt Date: 20181001
  Transmission Date: 20190204
  Serious: Yes (Other)
  Sender: FDA-Public Use
  Company Number: NG-TERSERA THERAPEUTICS LLC-TSR2018002192

PATIENT

DRUGS (1)
  1. ZOLADEX [Suspect]
     Active Substance: GOSERELIN ACETATE
     Indication: ANTIANDROGEN THERAPY
     Dosage: 3.6 MILLIGRAM, MONTHLY
     Route: 058

REACTIONS (3)
  - Insurance issue [Unknown]
  - Underdose [Unknown]
  - Metastases to skin [Unknown]
